FAERS Safety Report 8606737 (Version 4)
Quarter: 2014Q2

REPORT INFORMATION
  Report Type: Spontaneous
  Country: US (occurrence: US)
  Receive Date: 20120611
  Receipt Date: 20140402
  Transmission Date: 20141212
  Serious: Yes (Hospitalization, Disabling, Other)
  Sender: FDA-Public Use
  Company Number: US-ASTRAZENECA-2012SE34487

PATIENT
  Age: 44 Year
  Sex: Male

DRUGS (23)
  1. NEXIUM [Suspect]
     Indication: GASTROOESOPHAGEAL REFLUX DISEASE
     Route: 048
     Dates: start: 2002
  2. NEXIUM [Suspect]
     Indication: GASTROOESOPHAGEAL REFLUX DISEASE
     Route: 048
     Dates: start: 20020303
  3. PRILOSEC [Suspect]
     Route: 048
  4. PREVACID [Concomitant]
  5. ACIPHEX [Concomitant]
  6. ZANTAC [Concomitant]
  7. SYNTHROID [Concomitant]
     Indication: THYROID DISORDER
  8. AMBIEN [Concomitant]
     Indication: SLEEP DISORDER
  9. TOPAMAX [Concomitant]
  10. XYZAL [Concomitant]
     Indication: HYPERSENSITIVITY
  11. VITAMIN D [Concomitant]
  12. MULTI VITAMIN [Concomitant]
  13. MAGNESIUM [Concomitant]
  14. ROBAXIN [Concomitant]
     Indication: MYALGIA
  15. NORCO [Concomitant]
     Indication: PAIN
  16. NEURONTIN [Concomitant]
     Indication: PAIN
  17. FIERCEST [Concomitant]
     Indication: MIGRAINE
  18. PREDNISONE [Concomitant]
     Dates: start: 20070630
  19. MAXALT [Concomitant]
     Dates: start: 20071209
  20. LISINOPRIL [Concomitant]
     Dates: start: 20070906
  21. LUNESTA [Concomitant]
     Dates: start: 20070429
  22. METHOCARBAMOL [Concomitant]
     Dates: start: 20070112
  23. GABAPENTIN [Concomitant]
     Dates: start: 20060909

REACTIONS (19)
  - Fall [Unknown]
  - Spinal cord injury [Unknown]
  - Cerebrovascular accident [Unknown]
  - Upper limb fracture [Unknown]
  - Knee deformity [Unknown]
  - Shoulder deformity [Unknown]
  - Myocardial infarction [Unknown]
  - Osteoporosis [Unknown]
  - Multiple fractures [Unknown]
  - Carpal tunnel syndrome [Unknown]
  - Tibia fracture [Unknown]
  - Calcium deficiency [Unknown]
  - Hypothyroidism [Unknown]
  - Androgen deficiency [Unknown]
  - Vitamin D deficiency [Unknown]
  - Cataract [Unknown]
  - Swelling [Unknown]
  - Joint crepitation [Unknown]
  - Osteoarthritis [Unknown]
